FAERS Safety Report 4302897-2 (Version None)
Quarter: 2004Q1

REPORT INFORMATION
  Report Type: 
  Country: None (occurrence: None)
  Receive Date: 20040223
  Receipt Date: 20040223
  Transmission Date: 20041129
  Serious: Yes (Life-Threatening, Hospitalization)
  Sender: FDA-Public Use
  Company Number: None

PATIENT
  Age: 72 Year
  Sex: Male
  Weight: 77.7 kg

DRUGS (11)
  1. GEMCITABINE [Suspect]
     Indication: NON-SMALL CELL LUNG CANCER STAGE IIIB
     Dosage: 35-17 -5MG/M2 BIWEEKLY INTRAVENOUS
     Route: 042
     Dates: start: 20040106, end: 20040213
  2. ASPIRIN [Concomitant]
  3. TIMOLOL MALEATE [Concomitant]
  4. NIACIN [Concomitant]
  5. ATORVASTATIN [Concomitant]
  6. FOSINOPRIL SODIUM [Concomitant]
  7. METOPROLOL [Concomitant]
  8. CARAFATE [Concomitant]
  9. DOCUSATE [Concomitant]
  10. EXTERNAL BEAM RADIATION [Suspect]
     Indication: NON-SMALL CELL LUNG CANCER STAGE IIIB
     Dosage: 200CGY DAILY OTHER
     Route: 050
     Dates: start: 20040106, end: 20040213
  11. ENSURE [Concomitant]

REACTIONS (7)
  - ATRIAL FIBRILLATION [None]
  - DYSPNOEA EXERTIONAL [None]
  - HYPOAESTHESIA [None]
  - HYPOTENSION [None]
  - PERIPHERAL COLDNESS [None]
  - PYREXIA [None]
  - SENSATION OF HEAVINESS [None]
